FAERS Safety Report 7420316-4 (Version None)
Quarter: 2011Q2

REPORT INFORMATION
  Report Type: 
  Country: None (occurrence: None)
  Receive Date: 20110418
  Receipt Date: 20110408
  Transmission Date: 20111010
  Serious: Yes (Hospitalization)
  Sender: FDA-Public Use
  Company Number: PHHY2010DK71822

PATIENT
  Sex: Female

DRUGS (2)
  1. LEPONEX [Suspect]
     Route: 048
     Dates: start: 19950101
  2. LEPONEX [Suspect]
     Indication: SCHIZOPHRENIA
     Route: 048
     Dates: start: 19950101

REACTIONS (4)
  - SCHIZOPHRENIA [None]
  - TOOTH EROSION [None]
  - DRUG INEFFECTIVE [None]
  - SUICIDAL IDEATION [None]
